FAERS Safety Report 7007170-X (Version None)
Quarter: 2010Q3

REPORT INFORMATION
  Report Type: 
  Country: None (occurrence: None)
  Receive Date: 20100922
  Receipt Date: 20100914
  Transmission Date: 20110219
  Serious: Yes (Other)
  Sender: FDA-Public Use
  Company Number: US-AMGEN-KDL393753

PATIENT
  Sex: Male
  Weight: 72.2 kg

DRUGS (3)
  1. PROCRIT [Suspect]
     Indication: ANAEMIA
     Dates: start: 20060301
  2. PLAVIX [Concomitant]
  3. ALLOPURINOL [Concomitant]
     Route: 048
     Dates: start: 20100802

REACTIONS (2)
  - COLD TYPE HAEMOLYTIC ANAEMIA [None]
  - HAEMOGLOBIN DECREASED [None]
